FAERS Safety Report 5754870-5 (Version None)
Quarter: 2008Q2

REPORT INFORMATION
  Report Type: 
  Country: None (occurrence: None)
  Receive Date: 20080527
  Receipt Date: 20080507
  Transmission Date: 20081010
  Serious: Yes (Hospitalization)
  Sender: FDA-Public Use
  Company Number: 2008AL003945

PATIENT
  Age: 46 Year
  Sex: Male
  Weight: 63.5036 kg

DRUGS (12)
  1. DIGOXIN [Suspect]
     Indication: ATRIAL FIBRILLATION
     Dosage: .125MG DAILY PO
     Route: 048
  2. LYRIZINE [Concomitant]
  3. LORATA-D [Concomitant]
  4. ZOCOR [Concomitant]
  5. PROTONIX [Concomitant]
  6. AMBIEN [Concomitant]
  7. THALOMIDE [Concomitant]
  8. METOPROLOL TARTRATE [Concomitant]
  9. FOLIC ACID [Concomitant]
  10. SYNTHROID [Concomitant]
  11. DAPSONE [Concomitant]
  12. PHASLO [Concomitant]

REACTIONS (2)
  - HYPOTENSION [None]
  - PHARMACEUTICAL PRODUCT COMPLAINT [None]
